FAERS Safety Report 19012654 (Version 1)
Quarter: 2021Q1

REPORT INFORMATION
  Report Type: Spontaneous
  Country: US (occurrence: US)
  Receive Date: 20210316
  Receipt Date: 20210316
  Transmission Date: 20210420
  Serious: Yes (Life-Threatening, Hospitalization, Disabling)
  Sender: FDA-Public Use
  Company Number: None

PATIENT
  Age: 49 Year
  Sex: Female
  Weight: 78.93 kg

DRUGS (20)
  1. RISPERIDONE. [Suspect]
     Active Substance: RISPERIDONE
     Indication: PRODUCT USED FOR UNKNOWN INDICATION
     Dosage: ?          QUANTITY:1 DF DOSAGE FORM;?
     Route: 048
     Dates: start: 20011008
  2. SPIRONDACTO [Concomitant]
  3. DOK [Concomitant]
     Active Substance: DOCUSATE SODIUM
  4. REFRESH LUBRICANT EYE DROPS [Concomitant]
  5. CARVEDILOL. [Concomitant]
     Active Substance: CARVEDILOL
  6. COGENTIN [Concomitant]
     Active Substance: BENZTROPINE MESYLATE
  7. ENTRESTO [Concomitant]
     Active Substance: SACUBITRIL\VALSARTAN
  8. ZOLOFT [Concomitant]
     Active Substance: SERTRALINE HYDROCHLORIDE
  9. TYLENOL [Concomitant]
     Active Substance: ACETAMINOPHEN
  10. ATORVASTATIN [Concomitant]
     Active Substance: ATORVASTATIN
  11. ELIQUIS [Concomitant]
     Active Substance: APIXABAN
  12. TRESIBA [Concomitant]
     Active Substance: INSULIN DEGLUDEC
  13. VASCEPA [Concomitant]
     Active Substance: ICOSAPENT ETHYL
  14. FORSEMIDE [Concomitant]
  15. NITROGLYCERIN. [Concomitant]
     Active Substance: NITROGLYCERIN
  16. SERTALINE [Concomitant]
     Active Substance: SERTRALINE HYDROCHLORIDE
  17. SENTRY SENIOR MULTIVITAMIN [Concomitant]
  18. EARWAX DROPS [Concomitant]
  19. NOVOLOG [Concomitant]
     Active Substance: INSULIN ASPART
  20. RISPERIDAL [Concomitant]
     Active Substance: RISPERIDONE

REACTIONS (2)
  - Cardiac disorder [None]
  - Cardiac failure [None]

NARRATIVE: CASE EVENT DATE: 20011030
